FAERS Safety Report 23303362 (Version 1)
Quarter: 2023Q4

REPORT INFORMATION
  Report Type: Spontaneous
  Country: BR (occurrence: None)
  Receive Date: 20231215
  Receipt Date: 20231215
  Transmission Date: 20240109
  Serious: Yes (Other)
  Sender: FDA-Public Use
  Company Number: 2023A284819

PATIENT
  Age: 50 Day
  Sex: Male
  Weight: 4.2 kg

DRUGS (1)
  1. LOSEC [Suspect]
     Active Substance: OMEPRAZOLE
     Indication: Reflux gastritis
     Dosage: HALF A TABLET (5 MG), TABLET DILUTED IN WATER, FOR 3 DAYS
     Route: 048
     Dates: start: 20231204

REACTIONS (3)
  - Choking [Not Recovered/Not Resolved]
  - Off label use [Not Recovered/Not Resolved]
  - Product preparation issue [Not Recovered/Not Resolved]

NARRATIVE: CASE EVENT DATE: 20231201
